FAERS Safety Report 15508267 (Version 1)
Quarter: 2018Q4

REPORT INFORMATION
  Report Type: Spontaneous
  Country: FR (occurrence: FR)
  Receive Date: 20181016
  Receipt Date: 20181016
  Transmission Date: 20190205
  Serious: Yes (Hospitalization)
  Sender: FDA-Public Use
  Company Number: FR-TEVA-2018-FR-964607

PATIENT
  Age: 37 Year
  Sex: Female
  Weight: 82 kg

DRUGS (9)
  1. BACTRIM [Suspect]
     Active Substance: SULFAMETHOXAZOLE\TRIMETHOPRIM
     Indication: OPPORTUNISTIC INFECTION PROPHYLAXIS
     Route: 048
     Dates: start: 201806, end: 20180819
  2. NOVORAPID [Concomitant]
     Active Substance: INSULIN ASPART
     Indication: DIABETES MELLITUS
     Route: 058
  3. NEORAL 50 MG, CAPSULE MOLLE [Concomitant]
     Dosage: 300 MILLIGRAM DAILY;
     Route: 048
     Dates: start: 201806
  4. BISOCE [Concomitant]
     Active Substance: BISOPROLOL
     Dosage: 2.5 MILLIGRAM DAILY;
     Route: 048
     Dates: start: 201806
  5. NEXPLANON 68 MG, IMPLANT POUR USAGE SOUS-CUTAN? [Concomitant]
     Indication: CONTRACEPTION
     Route: 058
     Dates: start: 201806
  6. PANTOPRAZOLE [Suspect]
     Active Substance: PANTOPRAZOLE
     Indication: PROPHYLAXIS
     Dosage: 40 MILLIGRAM DAILY;
     Route: 048
     Dates: start: 201806, end: 20180829
  7. CELLCEPT [Suspect]
     Active Substance: MYCOPHENOLATE MOFETIL\MYCOPHENOLATE MOFETIL HYDROCHLORIDE
     Indication: RENAL TRANSPLANT
     Dosage: 2 GRAM DAILY;
     Route: 048
     Dates: start: 201806, end: 20180828
  8. ABASAGLAR 100 UNIT?S/ML, SOLUTION INJECTABLE EN STYLO PR?REMPLI [Concomitant]
     Active Substance: INSULIN GLARGINE
     Indication: DIABETES MELLITUS
     Route: 058
  9. ROVALCYTE 450 MG, COMPRIM? PELLICUL? [Suspect]
     Active Substance: VALGANCICLOVIR HYDROCHLORIDE
     Indication: ANTIVIRAL PROPHYLAXIS
     Dosage: 450 MILLIGRAM DAILY;
     Route: 048
     Dates: start: 201806, end: 20180830

REACTIONS (2)
  - Agranulocytosis [Recovered/Resolved]
  - Anaemia [Recovering/Resolving]

NARRATIVE: CASE EVENT DATE: 20180821
